FAERS Safety Report 8765734 (Version 4)
Quarter: 2012Q4

REPORT INFORMATION
  Report Type: Report from Study
  Country: JP (occurrence: JP)
  Receive Date: 20120904
  Receipt Date: 20121029
  Transmission Date: 20130627
  Serious: Yes (Hospitalization, Other)
  Sender: FDA-Public Use
  Company Number: JP-JNJFOC-20120516292

PATIENT
  Age: 59 Year
  Sex: Male

DRUGS (21)
  1. INVEGA [Suspect]
     Indication: SCHIZOPHRENIA
     Route: 048
     Dates: start: 20120315, end: 20120524
  2. INVEGA [Suspect]
     Indication: SCHIZOPHRENIA
     Route: 048
     Dates: start: 20111130, end: 20111207
  3. INVEGA [Suspect]
     Indication: SCHIZOPHRENIA
     Route: 048
     Dates: start: 20111208, end: 20120314
  4. CONTOMIN [Suspect]
     Indication: SCHIZOPHRENIA
     Route: 048
     Dates: start: 20111226, end: 20111228
  5. CONTOMIN [Suspect]
     Indication: SCHIZOPHRENIA
     Route: 048
     Dates: start: 20111229, end: 20120125
  6. CONTOMIN [Suspect]
     Indication: SCHIZOPHRENIA
     Route: 048
     Dates: start: 20120126, end: 20120201
  7. CONTOMIN [Suspect]
     Indication: SCHIZOPHRENIA
     Route: 048
     Dates: start: 20111222, end: 20111225
  8. CONTOMIN [Suspect]
     Indication: SCHIZOPHRENIA
     Route: 048
     Dates: start: 20111207, end: 20111221
  9. CONTOMIN [Suspect]
     Indication: SCHIZOPHRENIA
     Route: 048
     Dates: start: 20120202, end: 20120208
  10. CONTOMIN [Suspect]
     Indication: SCHIZOPHRENIA
     Route: 048
     Dates: start: 20120521, end: 20120524
  11. CONTOMIN [Suspect]
     Indication: SCHIZOPHRENIA
     Route: 048
     Dates: start: 20120501, end: 20120520
  12. CONTOMIN [Suspect]
     Indication: SCHIZOPHRENIA
     Route: 048
     Dates: start: 20120311, end: 20120430
  13. CONTOMIN [Suspect]
     Indication: SCHIZOPHRENIA
     Route: 048
     Dates: start: 20120209, end: 20120310
  14. WINTERMIN [Suspect]
     Indication: SCHIZOPHRENIA
     Route: 048
     Dates: end: 20111206
  15. FLUNITRAZEPAM [Concomitant]
     Indication: SCHIZOPHRENIA
     Route: 048
     Dates: start: 20111215, end: 20120524
  16. FLUNITRAZEPAM [Concomitant]
     Indication: SCHIZOPHRENIA
     Route: 048
     Dates: end: 20111214
  17. AMARYL [Concomitant]
     Indication: DIABETES MELLITUS
     Route: 048
     Dates: end: 20120524
  18. FERROMIA [Concomitant]
     Indication: IRON DEFICIENCY ANAEMIA
     Route: 048
     Dates: end: 20120524
  19. PARIET [Concomitant]
     Indication: GASTROOESOPHAGEAL REFLUX DISEASE
     Route: 048
     Dates: end: 20120524
  20. GOODMIN [Concomitant]
     Indication: SCHIZOPHRENIA
     Route: 048
     Dates: start: 20111215, end: 20120524
  21. BENZALIN [Concomitant]
     Indication: SCHIZOPHRENIA
     Route: 048
     Dates: start: 20110312, end: 20120524

REACTIONS (3)
  - Psychiatric symptom [Recovering/Resolving]
  - Neuroleptic malignant syndrome [Recovered/Resolved]
  - Pneumonia [Recovered/Resolved]
